FAERS Safety Report 6299728-0 (Version None)
Quarter: 2009Q3

REPORT INFORMATION
  Report Type: 
  Country: None (occurrence: None)
  Receive Date: 20090806
  Receipt Date: 20090728
  Transmission Date: 20100115
  Serious: Yes (Hospitalization)
  Sender: FDA-Public Use
  Company Number: FR-ABBOTT-09P-056-0588533-00

PATIENT
  Sex: Female

DRUGS (6)
  1. NORVIR [Suspect]
     Indication: HIV INFECTION
     Route: 048
     Dates: start: 20050525
  2. TELZIR [Suspect]
     Indication: HIV INFECTION
     Route: 048
     Dates: start: 20050525
  3. EPIVIR [Concomitant]
     Indication: HIV INFECTION
     Dates: start: 20050501
  4. VIREAD [Concomitant]
     Indication: HIV INFECTION
     Dates: start: 20050501
  5. PROZAC [Concomitant]
     Indication: DEPRESSION
  6. LUTERAN [Concomitant]
     Indication: DRUG USE FOR UNKNOWN INDICATION

REACTIONS (1)
  - ACUTE CORONARY SYNDROME [None]
